FAERS Safety Report 6249117-X (Version None)
Quarter: 2009Q2

REPORT INFORMATION
  Report Type: 
  Country: None (occurrence: None)
  Receive Date: 20090625
  Receipt Date: 20090528
  Transmission Date: 20091009
  Serious: Yes (Hospitalization)
  Sender: FDA-Public Use
  Company Number: 2009-197731-NL

PATIENT
  Age: 79 Year
  Sex: Male

DRUGS (1)
  1. BCG LIVE [Suspect]
     Dosage: INTRAVESICAL
     Route: 043
     Dates: start: 20090126, end: 20090126

REACTIONS (10)
  - ASTHENIA [None]
  - BOVINE TUBERCULOSIS [None]
  - CHILLS [None]
  - DRY MOUTH [None]
  - GRANULOMATOUS LIVER DISEASE [None]
  - HEPATOTOXICITY [None]
  - PANCYTOPENIA [None]
  - RENAL FAILURE [None]
  - SEPSIS [None]
  - SPLENOMEGALY [None]
